APPROVED DRUG PRODUCT: DECITABINE
Active Ingredient: DECITABINE
Strength: 50MG/VIAL
Dosage Form/Route: INJECTABLE;INTRAVENOUS
Application: A210756 | Product #001
Applicant: LUPIN LTD
Approved: Nov 9, 2018 | RLD: No | RS: No | Type: DISCN